FAERS Safety Report 9483563 (Version 1)
Quarter: 2013Q3

REPORT INFORMATION
  Report Type: Spontaneous
  Country: US (occurrence: US)
  Receive Date: 20130828
  Receipt Date: 20130828
  Transmission Date: 20140515
  Serious: Yes (Hospitalization)
  Sender: FDA-Public Use
  Company Number: US-AMGEN-KDL286990

PATIENT
  Sex: 0

DRUGS (2)
  1. PROCRIT [Suspect]
     Indication: HEPATITIS C
     Dosage: UNK UNK, UNK
     Route: 065
  2. PEGYLATED INTERFERON ALFA-2B [Concomitant]

REACTIONS (2)
  - Cerebrovascular accident [Unknown]
  - Blood triglycerides increased [Unknown]
